FAERS Safety Report 8981754 (Version 1)
Quarter: 2012Q4

REPORT INFORMATION
  Report Type: 
  Country: US (occurrence: US)
  Receive Date: 20121223
  Receipt Date: 20121223
  Transmission Date: 20130627
  Serious: Yes (Hospitalization)
  Sender: FDA-Public Use
  Company Number: PHEH2012US025096

PATIENT
  Age: 46 Year
  Sex: Male
  Weight: 131.7 kg

DRUGS (5)
  1. ZOMETA [Suspect]
     Indication: MULTIPLE MYELOMA
     Dosage: UNK
     Dates: start: 20121015
  2. REVLIMID [Concomitant]
  3. HUMALOG [Concomitant]
  4. DEXAMETHASONE [Concomitant]
  5. AMLODIPINE [Concomitant]

REACTIONS (2)
  - Blood glucose increased [Unknown]
  - Influenza like illness [Recovering/Resolving]
